FAERS Safety Report 8375639-1 (Version None)
Quarter: 2012Q2

REPORT INFORMATION
  Report Type: 
  Country: None (occurrence: None)
  Receive Date: 20120522
  Receipt Date: 20120517
  Transmission Date: 20120825
  Serious: No
  Sender: FDA-Public Use
  Company Number: US-PFIZER INC-2012122272

PATIENT
  Sex: Female

DRUGS (3)
  1. SULFASALAZINE [Suspect]
  2. LISINOPRIL [Suspect]
  3. ACTOS [Suspect]

REACTIONS (1)
  - DRUG HYPERSENSITIVITY [None]
